FAERS Safety Report 21670638 (Version 1)
Quarter: 2022Q4

REPORT INFORMATION
  Report Type: Spontaneous
  Country: IN (occurrence: IN)
  Receive Date: 20221202
  Receipt Date: 20221202
  Transmission Date: 20230112
  Serious: Yes (Hospitalization)
  Sender: FDA-Public Use
  Company Number: IN-STRIDES ARCOLAB LIMITED-2022SP016035

PATIENT
  Age: 24 Year
  Sex: Male

DRUGS (1)
  1. METRONIDAZOLE [Suspect]
     Active Substance: METRONIDAZOLE
     Indication: Enteritis
     Dosage: 1 DOSAGE FORM, TID, TABLET
     Route: 048

REACTIONS (3)
  - Cerebellar syndrome [Recovered/Resolved]
  - Toxicity to various agents [Unknown]
  - Off label use [Unknown]
